FAERS Safety Report 5509424-2 (Version None)
Quarter: 2007Q4

REPORT INFORMATION
  Report Type: 
  Country: None (occurrence: None)
  Receive Date: 20071107
  Receipt Date: 20071029
  Transmission Date: 20080405
  Serious: Yes (Other)
  Sender: FDA-Public Use
  Company Number: BR-PFIZER INC-2007091832

PATIENT
  Sex: Female

DRUGS (5)
  1. FRONTAL [Suspect]
     Indication: ANXIETY
     Route: 048
  2. FRONTAL [Suspect]
     Indication: DEPRESSION
  3. CAPTOPRIL [Concomitant]
     Indication: HYPERTENSION
  4. ATENOLOL [Concomitant]
     Indication: HYPERTENSION
  5. HYGROTON [Concomitant]
     Indication: HYPERTENSION

REACTIONS (4)
  - ANXIETY [None]
  - DEPRESSION [None]
  - INTRAOCULAR PRESSURE INCREASED [None]
  - MOOD ALTERED [None]
